FAERS Safety Report 6321237-0 (Version None)
Quarter: 2009Q3

REPORT INFORMATION
  Report Type: 
  Country: None (occurrence: None)
  Receive Date: 20090822
  Receipt Date: 20090106
  Transmission Date: 20100115
  Serious: No
  Sender: FDA-Public Use
  Company Number: US-ABBOTT-09P-163-0496139-00

PATIENT
  Sex: Female

DRUGS (2)
  1. NIASPAN [Suspect]
     Indication: BLOOD CHOLESTEROL INCREASED
     Dosage: ONE DAILY AT NIGHT
     Route: 048
     Dates: start: 20081231, end: 20090101
  2. NIASPAN [Suspect]
     Dosage: ONE DAILY AT NIGHT
     Route: 048
     Dates: end: 20081230

REACTIONS (2)
  - FLUSHING [None]
  - URTICARIA [None]
